FAERS Safety Report 8829932 (Version 1)
Quarter: 2012Q4

REPORT INFORMATION
  Report Type: 
  Country: DE (occurrence: DE)
  Receive Date: 20121008
  Receipt Date: 20121008
  Transmission Date: 20130627
  Serious: Yes (Congenital Anomaly, Other)
  Sender: FDA-Public Use
  Company Number: DE-TEVA-361125GER

PATIENT
  Age: 0 Year
  Sex: Male
  Weight: 2.25 kg

DRUGS (3)
  1. VENLAFAXINE [Suspect]
     Route: 064
  2. FOLIO [Concomitant]
     Route: 064
  3. TAVOR 0,5 TABLETTEN [Concomitant]
     Route: 064

REACTIONS (2)
  - Haemangioma [Recovering/Resolving]
  - Low birth weight baby [Unknown]
